FAERS Safety Report 4963494-9 (Version None)
Quarter: 2006Q1

REPORT INFORMATION
  Report Type: 
  Country: None (occurrence: None)
  Receive Date: 20060329
  Receipt Date: 20060213
  Transmission Date: 20060701
  Serious: Yes (Hospitalization)
  Sender: FDA-Public Use
  Company Number: 2006BH000676

PATIENT
  Age: 59 Year
  Sex: Female

DRUGS (6)
  1. POLYGAM S/D [Suspect]
     Dosage: 110 GM; ONCE; IV, 50 GM; ONCE; IV
     Route: 042
  2. DANAZOL [Concomitant]
  3. METOPROLOL [Concomitant]
  4. RAMIPRIL [Concomitant]
  5. CALCIUM CARBONATE [Concomitant]
  6. ALENDRONATE SODIUM [Concomitant]

REACTIONS (7)
  - ABDOMINAL PAIN UPPER [None]
  - BLOOD PRESSURE INCREASED [None]
  - MYOCARDITIS [None]
  - NAUSEA [None]
  - RENAL FAILURE ACUTE [None]
  - RENAL IMPAIRMENT [None]
  - VOMITING [None]
